APPROVED DRUG PRODUCT: HEMICLOR
Active Ingredient: CHLORTHALIDONE
Strength: 12.5MG
Dosage Form/Route: TABLET;ORAL
Application: N218647 | Product #001
Applicant: PRM PHARMA LLC
Approved: Mar 17, 2025 | RLD: Yes | RS: Yes | Type: RX